FAERS Safety Report 9801862 (Version 3)
Quarter: 2014Q1

REPORT INFORMATION
  Report Type: Spontaneous
  Country: US (occurrence: US)
  Receive Date: 20140107
  Receipt Date: 20140117
  Transmission Date: 20141002
  Serious: Yes (Hospitalization)
  Sender: FDA-Public Use
  Company Number: US-TMC-CABO-13003781

PATIENT
  Sex: Female

DRUGS (9)
  1. COMETRIQ [Suspect]
     Indication: THYROID CANCER
     Dosage: 140 MG, QD
     Route: 048
     Dates: start: 20130910, end: 201310
  2. COMETRIQ [Suspect]
     Dosage: 140 MG, QD
     Route: 048
     Dates: start: 20131211
  3. OXYCODONE [Concomitant]
  4. BENTYL [Concomitant]
  5. OXYCONTIN [Concomitant]
  6. LEVOTHYROXINE [Concomitant]
  7. CAPRELSA [Concomitant]
  8. LORAZEPAM [Concomitant]
  9. VIIBRYD [Concomitant]

REACTIONS (1)
  - Clostridium difficile infection [Unknown]
